FAERS Safety Report 10179868 (Version 1)
Quarter: 2014Q2

REPORT INFORMATION
  Report Type: Spontaneous
  Country: US (occurrence: US)
  Receive Date: 20140519
  Receipt Date: 20140519
  Transmission Date: 20141212
  Serious: No
  Sender: FDA-Public Use
  Company Number: US-AMGEN INC.-USASP2013069150

PATIENT
  Age: 98 Year
  Sex: Female

DRUGS (3)
  1. PROLIA [Suspect]
     Indication: OSTEOPOROSIS POSTMENOPAUSAL
     Dosage: UNK
     Route: 065
     Dates: start: 2011
  2. B12                                /00056201/ [Concomitant]
     Dosage: UNK UNK, QD
     Route: 065
  3. NAPROXEN                           /00256202/ [Concomitant]
     Dosage: UNK
     Route: 065

REACTIONS (3)
  - Contusion [Not Recovered/Not Resolved]
  - Mobility decreased [Unknown]
  - Asthenia [Unknown]
